FAERS Safety Report 6596829-4 (Version None)
Quarter: 2010Q1

REPORT INFORMATION
  Report Type: 
  Country: None (occurrence: None)
  Receive Date: 20100223
  Receipt Date: 20100215
  Transmission Date: 20100710
  Serious: Yes (Life-Threatening)
  Sender: FDA-Public Use
  Company Number: GXKR2010US01870

PATIENT
  Age: 39 Year
  Sex: Female

DRUGS (5)
  1. FENTANYL CITRATE [Interacting]
     Indication: OESOPHAGOGASTRODUODENOSCOPY
     Dosage: 50 UG IN 2 DIVIDED DOSES (25 UG 3 MIN APART)
     Route: 065
  2. SERTRALINE HCL [Suspect]
     Dosage: 100 MG/DAY
     Route: 065
  3. MIDAZOLAM HCL [Concomitant]
     Dosage: TWO DOSES OF 1MG
     Route: 065
  4. OCTREOTIDE ACETATE [Concomitant]
  5. PANTOPRAZOLE [Concomitant]
     Route: 041

REACTIONS (9)
  - DRUG INTERACTION [None]
  - ENDOTRACHEAL INTUBATION [None]
  - EYE MOVEMENT DISORDER [None]
  - HYPERHIDROSIS [None]
  - MUSCLE RIGIDITY [None]
  - PYREXIA [None]
  - RHABDOMYOLYSIS [None]
  - SEROTONIN SYNDROME [None]
  - SOMNOLENCE [None]
